FAERS Safety Report 9214919 (Version 1)
Quarter: 2013Q2

REPORT INFORMATION
  Report Type: Spontaneous
  Country: JP (occurrence: JP)
  Receive Date: 20130405
  Receipt Date: 20130405
  Transmission Date: 20140414
  Serious: Yes (Other)
  Sender: FDA-Public Use
  Company Number: JP-GLAXOSMITHKLINE-B0873872A

PATIENT
  Age: 48 Year
  Sex: Male

DRUGS (6)
  1. LAMICTAL [Suspect]
     Indication: MOOD SWINGS
     Dosage: 25MG PER DAY
     Route: 048
     Dates: start: 20130121, end: 20130201
  2. LAMICTAL [Suspect]
     Indication: MOOD SWINGS
     Dosage: 50MG PER DAY
     Route: 048
     Dates: start: 20130202, end: 20130216
  3. LIMAS [Concomitant]
     Indication: MOOD SWINGS
     Dosage: 200MG THREE TIMES PER DAY
     Route: 048
  4. LEXAPRO [Concomitant]
     Indication: ANTIDEPRESSANT THERAPY
     Dosage: 20MG PER DAY
     Route: 048
  5. LENDORMIN [Concomitant]
     Route: 048
  6. GASMOTIN [Concomitant]
     Indication: GASTROINTESTINAL DISORDER
     Dosage: 5MG THREE TIMES PER DAY
     Route: 048

REACTIONS (4)
  - Erythema multiforme [Recovering/Resolving]
  - Generalised erythema [Recovered/Resolved]
  - Pyrexia [Unknown]
  - Nasopharyngitis [Unknown]
